FAERS Safety Report 6666134-6 (Version None)
Quarter: 2010Q2

REPORT INFORMATION
  Report Type: 
  Country: None (occurrence: None)
  Receive Date: 20100402
  Receipt Date: 20100324
  Transmission Date: 20101027
  Serious: Yes (Hospitalization)
  Sender: FDA-Public Use
  Company Number: US-SANOFI-AVENTIS-2010SA018201

PATIENT
  Age: 64 Year
  Sex: Male

DRUGS (3)
  1. LANTUS [Suspect]
     Dosage: DOSE:40 UNIT(S)
     Route: 058
     Dates: start: 20080101
  2. SOLOSTAR [Suspect]
     Dates: start: 20080101
  3. ALL OTHER THERAPEUTIC PRODUCTS [Suspect]

REACTIONS (2)
  - PANCREATITIS [None]
  - SINUSITIS [None]
